FAERS Safety Report 11221631 (Version 1)
Quarter: 2015Q2

REPORT INFORMATION
  Report Type: Spontaneous
  Country: GB (occurrence: GB)
  Receive Date: 20150626
  Receipt Date: 20150626
  Transmission Date: 20150821
  Serious: Yes (Hospitalization)
  Sender: FDA-Public Use
  Company Number: GB-TEVA-572851ACC

PATIENT
  Age: 12 Year
  Sex: Female
  Weight: 50 kg

DRUGS (13)
  1. DEXAMETHASONE. [Concomitant]
     Active Substance: DEXAMETHASONE
  2. LEVOMEPROMAZINE [Concomitant]
     Active Substance: LEVOMEPROMAZINE
  3. VINCRISTINE [Concomitant]
     Active Substance: VINCRISTINE
  4. ONDANSETRON [Concomitant]
     Active Substance: ONDANSETRON
  5. NITROUS OXIDE. [Suspect]
     Active Substance: NITROUS OXIDE
     Indication: GENERAL ANAESTHESIA
     Route: 055
     Dates: start: 20150128, end: 20150128
  6. AMILORIDE [Concomitant]
     Active Substance: AMILORIDE
  7. CASPOFUNGIN [Concomitant]
     Active Substance: CASPOFUNGIN
  8. POSACONAZOLE [Concomitant]
     Active Substance: POSACONAZOLE
  9. METHOTREXATE [Suspect]
     Active Substance: METHOTREXATE
     Indication: ACUTE LEUKAEMIA IN REMISSION
     Route: 037
     Dates: start: 20150128, end: 20150128
  10. COTRIMOXAZOLE [Concomitant]
     Active Substance: SULFAMETHOXAZOLE\TRIMETHOPRIM
  11. CLARITHROMYCIN. [Concomitant]
     Active Substance: CLARITHROMYCIN
  12. METOCLOPRAMIDE. [Concomitant]
     Active Substance: METOCLOPRAMIDE
  13. VALACICLOVIR [Concomitant]
     Active Substance: VALACYCLOVIR HYDROCHLORIDE

REACTIONS (9)
  - Disinhibition [Recovered/Resolved with Sequelae]
  - Partial seizures with secondary generalisation [Recovered/Resolved with Sequelae]
  - Brain oedema [Recovered/Resolved with Sequelae]
  - Muscular weakness [Recovering/Resolving]
  - Leukoencephalopathy [Recovered/Resolved with Sequelae]
  - Neurological symptom [Recovered/Resolved with Sequelae]
  - Somnolence [Recovered/Resolved with Sequelae]
  - Agitation [Recovered/Resolved with Sequelae]
  - Vitamin B12 decreased [Recovered/Resolved]

NARRATIVE: CASE EVENT DATE: 20150201
